FAERS Safety Report 6371647-0 (Version None)
Quarter: 2009Q3

REPORT INFORMATION
  Report Type: 
  Country: None (occurrence: None)
  Receive Date: 20090923
  Receipt Date: 20090602
  Transmission Date: 20100115
  Serious: Yes (Other)
  Sender: FDA-Public Use
  Company Number: US-ASTRAZENECA-2008UW13535

PATIENT
  Age: 435 Month
  Sex: Male
  Weight: 129.3 kg

DRUGS (6)
  1. SEROQUEL [Suspect]
     Route: 048
     Dates: start: 19940101, end: 20000101
  2. ABILIFY [Concomitant]
  3. GEODON [Concomitant]
  4. RISPERDAL [Concomitant]
  5. THORAZINE [Concomitant]
     Dates: start: 19910101, end: 19940101
  6. ZYPREXA [Concomitant]
     Dates: start: 19940101, end: 19990101

REACTIONS (3)
  - PANCREATITIS [None]
  - TARDIVE DYSKINESIA [None]
  - TYPE 2 DIABETES MELLITUS [None]
